FAERS Safety Report 23288909 (Version 2)
Quarter: 2024Q1

REPORT INFORMATION
  Report Type: Spontaneous
  Country: US (occurrence: US)
  Receive Date: 20231212
  Receipt Date: 20240103
  Transmission Date: 20240409
  Serious: No
  Sender: FDA-Public Use
  Company Number: US-SANOFI-01869046

PATIENT
  Sex: Female

DRUGS (1)
  1. AMBIEN CR [Suspect]
     Active Substance: ZOLPIDEM TARTRATE
     Indication: Hypersomnia-bulimia syndrome
     Dosage: 6.25 MG, BID

REACTIONS (1)
  - Drug ineffective [Unknown]
